FAERS Safety Report 4932253-5 (Version None)
Quarter: 2006Q1

REPORT INFORMATION
  Report Type: 
  Country: None (occurrence: None)
  Receive Date: 20060228
  Receipt Date: 20060216
  Transmission Date: 20060701
  Serious: Yes (Disabling)
  Sender: FDA-Public Use
  Company Number: 2006025410

PATIENT
  Age: 59 Year
  Sex: Male

DRUGS (6)
  1. ZYVOX [Suspect]
     Indication: ILL-DEFINED DISORDER
     Dosage: 1200 MG, DAILY ORAL
     Route: 048
     Dates: start: 20060118, end: 20060207
  2. LEVOXACIN (LEVOFLOXACIN) [Suspect]
     Indication: ILL-DEFINED DISORDER
     Dosage: 1000 MG, DAILY, ORAL
     Route: 048
     Dates: start: 20060116, end: 20060205
  3. OMEPRAZOLE [Concomitant]
  4. RIFAMPICIN [Concomitant]
  5. PAROXETINE HCL [Concomitant]
  6. SELEPARINA (HEPARIN-FRACTION, CALCIUM SALT) [Concomitant]

REACTIONS (1)
  - DEAFNESS [None]
